FAERS Safety Report 22289920 (Version 1)
Quarter: 2023Q2

REPORT INFORMATION
  Report Type: Report from Study
  Country: US (occurrence: US)
  Receive Date: 20230505
  Receipt Date: 20230505
  Transmission Date: 20230722
  Serious: Yes (Other)
  Sender: FDA-Public Use
  Company Number: US-PFIZER INC-202300180349

PATIENT

DRUGS (10)
  1. VINCRISTINE SULFATE [Suspect]
     Active Substance: VINCRISTINE SULFATE
     Indication: Acute lymphocytic leukaemia
     Dosage: 2 MG, CYCLIC, DAYS 4 AND 11
     Route: 042
  2. VINCRISTINE SULFATE [Suspect]
     Active Substance: VINCRISTINE SULFATE
     Indication: Burkitt^s lymphoma
  3. DOXORUBICIN [Concomitant]
     Active Substance: DOXORUBICIN
     Indication: Acute lymphocytic leukaemia
     Dosage: 50 MG/M2, CYCLIC, OVER 24 HOURS VIA CENTRAL VENOUS CATHETER DAY 4
     Route: 042
  4. DOXORUBICIN [Concomitant]
     Active Substance: DOXORUBICIN
     Indication: Burkitt^s lymphoma
  5. RITUXIMAB [Concomitant]
     Active Substance: RITUXIMAB
     Indication: Acute lymphocytic leukaemia
     Dosage: 375 MG/M2, CYCLIC, OVER 2 TO 6 HOURS ON DAYS 1 AND 11 OF HYPER-CVAD
     Route: 042
  6. RITUXIMAB [Concomitant]
     Active Substance: RITUXIMAB
     Indication: Burkitt^s lymphoma
  7. CYCLOPHOSPHAMIDE [Concomitant]
     Active Substance: CYCLOPHOSPHAMIDE
     Indication: Acute lymphocytic leukaemia
     Dosage: 300 MG/M2, CYCLIC EVERY 12 HOURS FOR 6 DOSES DAYS 1 TO 3
     Route: 042
  8. CYCLOPHOSPHAMIDE [Concomitant]
     Active Substance: CYCLOPHOSPHAMIDE
     Indication: Burkitt^s lymphoma
  9. DEXAMETHASONE [Concomitant]
     Active Substance: DEXAMETHASONE
     Indication: Acute lymphocytic leukaemia
     Dosage: 40 MG, CYCLIC, DAILY DAYS 1 TO 4 AND 11 TO 14
  10. DEXAMETHASONE [Concomitant]
     Active Substance: DEXAMETHASONE
     Indication: Burkitt^s lymphoma

REACTIONS (1)
  - Neuropathy peripheral [Unknown]
